FAERS Safety Report 16395303 (Version 1)
Quarter: 2019Q2

REPORT INFORMATION
  Report Type: Spontaneous
  Country: US (occurrence: US)
  Receive Date: 20190605
  Receipt Date: 20190605
  Transmission Date: 20190711
  Serious: Yes (Other)
  Sender: FDA-Public Use
  Company Number: US-AMREGENT-20191102

PATIENT
  Age: 2 Week
  Sex: Male
  Weight: 4.7 kg

DRUGS (4)
  1. PRALIDOXIME [Concomitant]
     Active Substance: PRALIDOXIME
     Dosage: 10 MG/KG
     Route: 040
  2. ORGANOPHOSPHATE [Concomitant]
     Dosage: UNKNOWN
     Route: 048
  3. LORAZEPAM. [Concomitant]
     Active Substance: LORAZEPAM
     Dosage: UNKNOWN
     Route: 065
  4. ATROPINE SULFATE INJECTION, USP (0101-25) [Suspect]
     Active Substance: ATROPINE SULFATE
     Dosage: UNKNOWN
     Route: 065

REACTIONS (2)
  - Bronchial secretion retention [Unknown]
  - Neonatal hypoxia [Unknown]
